FAERS Safety Report 19641789 (Version 2)
Quarter: 2021Q3

REPORT INFORMATION
  Report Type: Spontaneous
  Country: IN (occurrence: IN)
  Receive Date: 20210730
  Receipt Date: 20210907
  Transmission Date: 20211014
  Serious: Yes (Death)
  Sender: FDA-Public Use
  Company Number: IN-PFIZER INC-2018019260

PATIENT
  Age: 54 Year
  Sex: Female
  Weight: 72 kg

DRUGS (3)
  1. LETROZOLE. [Concomitant]
     Active Substance: LETROZOLE
     Dosage: 2.5 MG, 1X/DAY (1?0?0)
  2. SHELCAL [Concomitant]
     Active Substance: CALCIUM CARBONATE\CHOLECALCIFEROL
     Dosage: 500 MG, 2X/DAY (1?0?1)
  3. PALBACE [Suspect]
     Active Substance: PALBOCICLIB
     Indication: BREAST CANCER METASTATIC
     Dosage: 125 MG, CYCLIC (ONCE DAILY, 21 DAYS ON, 7 DAYS OFF)
     Route: 048
     Dates: start: 20171123

REACTIONS (3)
  - Lymphoedema [Unknown]
  - Cardiac failure [Fatal]
  - Malaise [Unknown]
